FAERS Safety Report 9439679 (Version 1)
Quarter: 2013Q3

REPORT INFORMATION
  Report Type: Spontaneous
  Country: US (occurrence: None)
  Receive Date: 20130802
  Receipt Date: 20130802
  Transmission Date: 20140515
  Serious: Yes (Life-Threatening, Disabling, Other)
  Sender: FDA-Public Use
  Company Number: None

PATIENT
  Age: 65 Year
  Sex: Female

DRUGS (11)
  1. MIRALAX [Suspect]
     Indication: CONSTIPATION
     Dosage: 1 TIME DAILY MORNING OR EVENING IN 4-6 OZ OF BEVERAGE BY MOUTH
     Route: 048
     Dates: start: 20130717, end: 20130717
  2. BUPROPION HCL [Concomitant]
  3. ACTONEL [Concomitant]
  4. PHENTERMINE [Concomitant]
  5. CALCIUM CITRATE W MAGNESIUM [Concomitant]
  6. ZINC + D3 [Concomitant]
  7. PHENTERMINE [Concomitant]
  8. CALCIUM CITRATE W/MAGNESIUM [Concomitant]
  9. ZINC + D3 [Concomitant]
  10. SUPER OMEGA [Concomitant]
  11. VITAMIN D3 [Concomitant]

REACTIONS (3)
  - Ear pruritus [None]
  - Urticaria [None]
  - Dyspnoea [None]
